FAERS Safety Report 8206156-7 (Version None)
Quarter: 2012Q1

REPORT INFORMATION
  Report Type: 
  Country: None (occurrence: None)
  Receive Date: 20120313
  Receipt Date: 20120302
  Transmission Date: 20120608
  Serious: Yes (Other)
  Sender: FDA-Public Use
  Company Number: FR-FRI-1000019377

PATIENT
  Sex: Female
  Weight: 58 kg

DRUGS (2)
  1. ESCITALOPRAM [Suspect]
     Dosage: 2.5 MG
     Route: 048
  2. ESCITALOPRAM [Suspect]
     Dosage: 10 MG
     Route: 048
     Dates: start: 20091001

REACTIONS (3)
  - PREMATURE DELIVERY [None]
  - PREGNANCY [None]
  - GESTATIONAL DIABETES [None]
